FAERS Safety Report 12764346 (Version 1)
Quarter: 2016Q3

REPORT INFORMATION
  Report Type: Spontaneous
  Country: TW (occurrence: TW)
  Receive Date: 20160920
  Receipt Date: 20160920
  Transmission Date: 20161109
  Serious: Yes (Other)
  Sender: FDA-Public Use
  Company Number: TW-MYLANLABS-2016M1039789

PATIENT

DRUGS (3)
  1. CLOZAPINE. [Suspect]
     Active Substance: CLOZAPINE
     Indication: SCHIZOPHRENIA
     Dosage: 50 MG, QD
  2. FLUVOXAMINE [Suspect]
     Active Substance: FLUVOXAMINE
     Indication: SCHIZOPHRENIA
  3. CLOZAPINE. [Suspect]
     Active Substance: CLOZAPINE
     Dosage: 200 MG, QD

REACTIONS (5)
  - Tachycardia [Recovered/Resolved]
  - Diabetes mellitus [Unknown]
  - Somnolence [Recovered/Resolved]
  - Drooling [Unknown]
  - Orthostatic hypotension [Recovered/Resolved]
